FAERS Safety Report 8896269 (Version 4)
Quarter: 2013Q2

REPORT INFORMATION
  Report Type: Spontaneous
  Country: DE (occurrence: None)
  Receive Date: 20121031
  Receipt Date: 20130612
  Transmission Date: 20140414
  Serious: Yes (Other)
  Sender: FDA-Public Use
  Company Number: VAL_00940_2012

PATIENT
  Age: 35 Year
  Sex: Female

DRUGS (2)
  1. BROMOCRIPTINE [Suspect]
     Indication: PRODUCT USED FOR UNKNOWN INDICATION
     Dosage: 1.5 DAILY DAY 2 ONWARDS
  2. LEVOSIMENDAN [Concomitant]

REACTIONS (4)
  - Cardiac failure [None]
  - Caesarean section [None]
  - Exposure during pregnancy [None]
  - Peripartum cardiomyopathy [None]
